FAERS Safety Report 4754283-9 (Version None)
Quarter: 2005Q3

REPORT INFORMATION
  Report Type: 
  Country: None (occurrence: None)
  Receive Date: 20050825
  Receipt Date: 20050810
  Transmission Date: 20060218
  Serious: Yes (Other)
  Sender: FDA-Public Use
  Company Number: 2005-07-0203

PATIENT
  Sex: Female

DRUGS (4)
  1. CLARINEX [Suspect]
     Indication: DRUG USE FOR UNKNOWN INDICATION
     Dosage: ORAL
     Route: 048
  2. GABAPENTIN [Suspect]
     Indication: CONVULSION
  3. TOPAMAX [Suspect]
     Indication: CONVULSION
  4. ZONEGRAN [Suspect]
     Indication: CONVULSION

REACTIONS (2)
  - CONDITION AGGRAVATED [None]
  - CONVULSION [None]
